FAERS Safety Report 25615593 (Version 2)
Quarter: 2025Q4

REPORT INFORMATION
  Report Type: Spontaneous
  Country: CA (occurrence: CA)
  Receive Date: 20250729
  Receipt Date: 20251002
  Transmission Date: 20260118
  Serious: Yes (Other)
  Sender: CELLTRION
  Company Number: CA-PFIZER INC-202500148559

PATIENT

DRUGS (3)
  1. INFLECTRA [Suspect]
     Active Substance: INFLIXIMAB-DYYB
     Indication: Ankylosing spondylitis
     Dosage: 396 MG, EVERY 8 WEEKS(Q8-12 WEEK)
     Dates: start: 20230710
  2. INFLECTRA [Suspect]
     Active Substance: INFLIXIMAB-DYYB
     Dosage: 396 MG,EVERY 8 WEEK (Q8-12 WEEK)
     Dates: start: 20250611
  3. DUTASTERIDE [Concomitant]
     Active Substance: DUTASTERIDE
     Dosage: 0.5 MG, DAILY(1 DF)
     Route: 048

REACTIONS (3)
  - Squamous cell carcinoma [Unknown]
  - Condition aggravated [Recovering/Resolving]
  - Jaw cyst [Not Recovered/Not Resolved]

NARRATIVE: CASE EVENT DATE: 20250101
